FAERS Safety Report 18648959 (Version 1)
Quarter: 2020Q4

REPORT INFORMATION
  Report Type: Spontaneous
  Country: US (occurrence: US)
  Receive Date: 20201221
  Receipt Date: 20201221
  Transmission Date: 20210114
  Serious: Yes (Life-Threatening, Hospitalization)
  Sender: FDA-Public Use
  Company Number: None

PATIENT
  Age: 77 Year
  Sex: Male
  Weight: 88 kg

DRUGS (2)
  1. WARFARIN (WARFARIN NA (EXELAN) 5MG TAB) [Suspect]
     Active Substance: WARFARIN SODIUM
     Indication: AORTIC VALVE REPLACEMENT
     Route: 048
     Dates: start: 20170402, end: 20200414
  2. WARFARIN (WARFARIN NA (EXELAN) 5MG TAB) [Suspect]
     Active Substance: WARFARIN SODIUM
     Indication: CARDIAC VALVE PROSTHESIS USER
     Route: 048
     Dates: start: 20170402, end: 20200414

REACTIONS (6)
  - Packed red blood cell transfusion [None]
  - International normalised ratio increased [None]
  - Transfusion [None]
  - Orthostatic hypotension [None]
  - Haemoglobin decreased [None]
  - Gastric haemorrhage [None]

NARRATIVE: CASE EVENT DATE: 20200313
